FAERS Safety Report 7971216-2 (Version None)
Quarter: 2011Q4

REPORT INFORMATION
  Report Type: 
  Country: None (occurrence: None)
  Receive Date: 20111212
  Receipt Date: 20111205
  Transmission Date: 20120403
  Serious: Yes (Life-Threatening, Hospitalization, Other)
  Sender: FDA-Public Use
  Company Number: PHEH2011US03830

PATIENT
  Sex: Female
  Weight: 76 kg

DRUGS (10)
  1. MULTI-VITAMINS [Concomitant]
     Dosage: 1 DF, DAILY
  2. VITAMIN A AND D [Concomitant]
  3. GREEN TEA [Concomitant]
  4. FISH OIL [Concomitant]
  5. EVENING PRIMROSE OIL [Concomitant]
  6. GILENYA [Suspect]
     Indication: MULTIPLE SCLEROSIS
     Dosage: 0.5 MG, UNK
     Route: 048
     Dates: start: 20110701
  7. PROBIOTICS [Concomitant]
  8. CRANBERRY [Concomitant]
  9. CALCIUM WITH VITAMIN D [Concomitant]
  10. SELENIUM [Concomitant]

REACTIONS (5)
  - BRADYCARDIA [None]
  - ATRIOVENTRICULAR BLOCK SECOND DEGREE [None]
  - POLLAKIURIA [None]
  - ATRIOVENTRICULAR BLOCK COMPLETE [None]
  - HEADACHE [None]
